FAERS Safety Report 24052791 (Version 2)
Quarter: 2024Q3

REPORT INFORMATION
  Report Type: Spontaneous
  Country: US (occurrence: US)
  Receive Date: 20240705
  Receipt Date: 20240709
  Transmission Date: 20241017
  Serious: No
  Sender: BIOGEN
  Company Number: US-BIOGEN-2024BI01270412

PATIENT
  Age: 51 Year
  Sex: Female

DRUGS (2)
  1. PLEGRIDY [Suspect]
     Active Substance: PEGINTERFERON BETA-1A
     Indication: Multiple sclerosis
     Route: 050
     Dates: start: 20240524, end: 2024
  2. PLEGRIDY [Suspect]
     Active Substance: PEGINTERFERON BETA-1A
     Route: 050
     Dates: start: 20240607, end: 20240702

REACTIONS (1)
  - Influenza like illness [Recovered/Resolved]

NARRATIVE: CASE EVENT DATE: 20240501
